FAERS Safety Report 9105338 (Version 2)
Quarter: 2013Q1

REPORT INFORMATION
  Report Type: Spontaneous
  Country: FR (occurrence: FR)
  Receive Date: 20130220
  Receipt Date: 20130304
  Transmission Date: 20140127
  Serious: Yes (Death, Life-Threatening, Hospitalization)
  Sender: FDA-Public Use
  Company Number: FR-BRISTOL-MYERS SQUIBB COMPANY-17378928

PATIENT
  Age: 82 Year
  Sex: Female

DRUGS (14)
  1. COUMADINE [Suspect]
     Indication: CARDIAC FLUTTER
     Route: 048
     Dates: start: 20121123, end: 20121128
  2. ASPEGIC [Suspect]
  3. CALCIPARINE [Suspect]
     Indication: CARDIAC FLUTTER
     Dosage: 08-NOV-2012 TO 28-NOV-2012 WITH AN INTERRUPTION FROM 15-NOV-2012 TO 21-NOV-2012
     Route: 058
     Dates: start: 20121108, end: 20121121
  4. FLUINDIONE [Suspect]
  5. DILTIAZEM HCL [Concomitant]
  6. LASILIX [Concomitant]
  7. JANUVIA [Concomitant]
  8. PROCORALAN [Concomitant]
  9. CORVASAL [Concomitant]
  10. ZYLORIC [Concomitant]
  11. PARIET [Concomitant]
  12. LANTUS [Concomitant]
  13. ZALDIAR [Concomitant]
  14. DOLIPRANE [Concomitant]

REACTIONS (5)
  - Death [Fatal]
  - Sepsis [Unknown]
  - Shock haemorrhagic [Not Recovered/Not Resolved]
  - Rectal haemorrhage [Not Recovered/Not Resolved]
  - Epistaxis [Unknown]
